FAERS Safety Report 8000168-4 (Version None)
Quarter: 2011Q4

REPORT INFORMATION
  Report Type: 
  Country: None (occurrence: None)
  Receive Date: 20111220
  Receipt Date: 20111220
  Transmission Date: 20120403
  Serious: Yes (Hospitalization)
  Sender: FDA-Public Use
  Company Number: None

PATIENT
  Sex: Male
  Weight: 129 kg

DRUGS (4)
  1. DOXORUBICIN HCL [Suspect]
     Dosage: 132 MG
  2. VINCRISTINE SULFATE [Suspect]
     Dosage: 2 MG
  3. RITUXIMAB (MOAB C2B8 ANTI CD20, CHIMERIC) [Suspect]
     Dosage: 990 MG
  4. CYCLOPHOSPHAMIDE [Suspect]
     Dosage: 1970 MG

REACTIONS (7)
  - CHEST X-RAY ABNORMAL [None]
  - OXYGEN SATURATION DECREASED [None]
  - RHINORRHOEA [None]
  - CHILLS [None]
  - BLOOD URIC ACID INCREASED [None]
  - PYREXIA [None]
  - DYSPNOEA [None]
